FAERS Safety Report 9933371 (Version 2)
Quarter: 2014Q1

REPORT INFORMATION
  Report Type: Report from Study
  Country: US (occurrence: US)
  Receive Date: 20140228
  Receipt Date: 20140228
  Transmission Date: 20141002
  Serious: No
  Sender: FDA-Public Use
  Company Number: US-MYLANLABS-2013S1007327

PATIENT
  Age: 14 Year
  Sex: Female
  Weight: 53.07 kg

DRUGS (4)
  1. AMNESTEEM CAPSULES [Suspect]
     Indication: ACNE
     Route: 048
     Dates: start: 20121107, end: 201301
  2. AMNESTEEM CAPSULES [Suspect]
     Indication: ACNE
     Route: 048
     Dates: start: 201301, end: 201302
  3. AMNESTEEM CAPSULES [Suspect]
     Indication: ACNE
     Route: 048
     Dates: start: 201302, end: 20130330
  4. CLARAVIS [Suspect]

REACTIONS (2)
  - Arthralgia [Not Recovered/Not Resolved]
  - Mood altered [Not Recovered/Not Resolved]
